FAERS Safety Report 9938486 (Version 1)
Quarter: 2014Q1

REPORT INFORMATION
  Report Type: Report from Study
  Country: US (occurrence: US)
  Receive Date: 20140303
  Receipt Date: 20140303
  Transmission Date: 20141002
  Serious: No
  Sender: FDA-Public Use
  Company Number: US-ABBVIE-13P-163-1032107-00

PATIENT
  Age: 54 Year
  Sex: Female
  Weight: 90.8 kg

DRUGS (9)
  1. HUMIRA [Suspect]
     Indication: RHEUMATOID ARTHRITIS
     Route: 058
     Dates: start: 2009
  2. METHOTREXATE [Concomitant]
     Indication: RHEUMATOID ARTHRITIS
  3. MELOXICAM [Concomitant]
     Indication: RHEUMATOID ARTHRITIS
  4. SULFASALAZINE [Concomitant]
     Indication: RHEUMATOID ARTHRITIS
  5. CELEXA [Concomitant]
     Indication: AGITATION
  6. LIPITOR [Concomitant]
     Indication: BLOOD CHOLESTEROL INCREASED
  7. NEXIUM [Concomitant]
     Indication: GASTROOESOPHAGEAL REFLUX DISEASE
  8. ELAVIL [Concomitant]
     Indication: BRUXISM
     Dosage: QHS
  9. FOLIC ACID [Concomitant]
     Indication: VITAMIN SUPPLEMENTATION

REACTIONS (4)
  - Stress [Unknown]
  - Rheumatoid arthritis [Not Recovered/Not Resolved]
  - Rheumatoid arthritis [Not Recovered/Not Resolved]
  - Rheumatoid arthritis [Not Recovered/Not Resolved]
